FAERS Safety Report 9527219 (Version 1)
Quarter: 2013Q3

REPORT INFORMATION
  Report Type: Spontaneous
  Country: ES (occurrence: ES)
  Receive Date: 20130917
  Receipt Date: 20130917
  Transmission Date: 20140515
  Serious: Yes (Hospitalization, Other)
  Sender: FDA-Public Use
  Company Number: ES-TAKEDA-2013TUS000462

PATIENT
  Age: 79 Year
  Sex: Female

DRUGS (9)
  1. ADENURIC [Suspect]
     Dosage: 80 MG, QD
     Route: 048
     Dates: start: 20130207, end: 20130404
  2. PARACETAMOL W/TRAMADOL HYDROCHLORIDE [Suspect]
     Dosage: UNK, TID
     Route: 048
     Dates: start: 201302
  3. LOBIVON PLUS [Concomitant]
     Dosage: 1 DF,QD
     Route: 048
  4. DOXAZOSIN [Concomitant]
     Dosage: 4 MG, QD
     Route: 048
  5. CLOPIDOGREL [Concomitant]
     Dosage: 75 MG, QD
     Route: 048
  6. SIMVASTATIN [Concomitant]
     Dosage: 20 MG, QD
     Route: 048
  7. ALOPURINOL [Concomitant]
     Dosage: 100 MG, QD
     Route: 048
  8. FAMOTIDINE [Concomitant]
     Dosage: 40 MG, QD
     Route: 048
  9. SPIRONOLACTONE [Concomitant]
     Dosage: 50 MG, UNK
     Route: 048

REACTIONS (2)
  - Confusional state [Recovered/Resolved]
  - Renal failure acute [Recovered/Resolved]
